FAERS Safety Report 24961248 (Version 1)
Quarter: 2025Q1

REPORT INFORMATION
  Report Type: Spontaneous
  Country: US (occurrence: None)
  Receive Date: 20250211
  Receipt Date: 20250211
  Transmission Date: 20250408
  Serious: No
  Sender: FDA-CTU
  Company Number: None

PATIENT

DRUGS (12)
  1. ZYPREXA ZYDIS [Suspect]
     Active Substance: OLANZAPINE
  2. ZYPREXA RELPREVV [Suspect]
     Active Substance: OLANZAPINE PAMOATE
  3. LITHIUM CARBONATE [Suspect]
     Active Substance: LITHIUM CARBONATE
  4. INVEGA [Suspect]
     Active Substance: PALIPERIDONE
  5. GEODON [Suspect]
     Active Substance: ZIPRASIDONE HYDROCHLORIDE\ZIPRASIDONE MESYLATE
  6. RISPERDAL [Suspect]
     Active Substance: RISPERIDONE
  7. ARIPIPRAZOLE [Suspect]
     Active Substance: ARIPIPRAZOLE
  8. VISTARIL [Suspect]
     Active Substance: HYDROXYZINE PAMOATE
  9. DEPAKOTE [Suspect]
     Active Substance: DIVALPROEX SODIUM
  10. DEPAKENE [Suspect]
     Active Substance: VALPROIC ACID
  11. SEROQUEL [Suspect]
     Active Substance: QUETIAPINE FUMARATE
  12. MILK PROTEIN CONCENTRATE [Suspect]
     Active Substance: MILK PROTEIN CONCENTRATE

REACTIONS (13)
  - Hypersensitivity [None]
  - Skin wound [None]
  - Blister [None]
  - Tardive dyskinesia [None]
  - Extrapyramidal disorder [None]
  - Akathisia [None]
  - Metabolic dysfunction-associated liver disease [None]
  - Tinnitus [None]
  - Brain injury [None]
  - Sleep disorder [None]
  - Abnormal dreams [None]
  - Nightmare [None]
  - Dry mouth [None]
